FAERS Safety Report 4510123-4 (Version None)
Quarter: 2004Q4

REPORT INFORMATION
  Report Type: 
  Country: None (occurrence: None)
  Receive Date: 20041124
  Receipt Date: 20041116
  Transmission Date: 20050328
  Serious: Yes (Hospitalization)
  Sender: FDA-Public Use
  Company Number: US-JNJFOC-20040900828

PATIENT
  Sex: Male
  Weight: 86.64 kg

DRUGS (19)
  1. REMICADE [Suspect]
     Route: 042
  2. REMICADE [Suspect]
     Route: 042
  3. REMICADE [Suspect]
     Route: 042
  4. REMICADE [Suspect]
     Route: 042
  5. REMICADE [Suspect]
     Route: 042
  6. REMICADE [Suspect]
     Indication: CROHN'S DISEASE
     Route: 042
  7. PREDNISONE [Concomitant]
  8. PREDNISONE [Concomitant]
  9. SULFASALAZINE [Concomitant]
     Dosage: 1-2 TABS
  10. ASPIRIN [Concomitant]
  11. FLUOXETINE [Concomitant]
  12. LISINOPRIL [Concomitant]
  13. CHOLINE MAGNESIUM TRISALICYLATE [Concomitant]
  14. NIACIN [Concomitant]
  15. LIPITOR [Concomitant]
  16. METFORMIN [Concomitant]
  17. CALTRATE [Concomitant]
  18. REGULAR ILETIN II [Concomitant]
     Dosage: SLIDING SCALE
  19. HUMALOG [Concomitant]
     Dosage: SLIDING SCALE

REACTIONS (18)
  - ANTINUCLEAR ANTIBODY POSITIVE [None]
  - ARTHRALGIA [None]
  - ASTHENIA [None]
  - C-REACTIVE PROTEIN INCREASED [None]
  - CHEST PAIN [None]
  - DYSPNOEA [None]
  - EATING DISORDER [None]
  - FEELING ABNORMAL [None]
  - HAEMATOCRIT DECREASED [None]
  - HAEMOGLOBIN DECREASED [None]
  - HYPERHIDROSIS [None]
  - JOINT SWELLING [None]
  - LUPUS-LIKE SYNDROME [None]
  - NAUSEA [None]
  - OEDEMA PERIPHERAL [None]
  - PAIN [None]
  - PROTHROMBIN TIME SHORTENED [None]
  - PYREXIA [None]
